FAERS Safety Report 4641037-7 (Version None)
Quarter: 2005Q2

REPORT INFORMATION
  Report Type: 
  Country: None (occurrence: None)
  Receive Date: 20050421
  Receipt Date: 20050314
  Transmission Date: 20051028
  Serious: No
  Sender: FDA-Public Use
  Company Number: US-BRISTOL-MYERS SQUIBB COMPANY-12898995

PATIENT
  Sex: Female

DRUGS (1)
  1. LAC-HYDRIN [Suspect]

REACTIONS (1)
  - SKIN DISCOLOURATION [None]
